FAERS Safety Report 9484264 (Version 2)
Quarter: 2013Q3

REPORT INFORMATION
  Report Type: Spontaneous
  Country: CA (occurrence: CA)
  Receive Date: 20130828
  Receipt Date: 20130828
  Transmission Date: 20140515
  Serious: Yes (Other)
  Sender: FDA-Public Use
  Company Number: CA-AMGEN-KDL351757

PATIENT
  Age: 51 Year
  Sex: Female
  Weight: 160.3 kg

DRUGS (1)
  1. ENBREL [Suspect]
     Indication: RHEUMATOID ARTHRITIS
     Dosage: UNK UNK, QWK
     Route: 065
     Dates: start: 20090524, end: 20090712

REACTIONS (3)
  - Hypoaesthesia [Recovered/Resolved]
  - Oropharyngeal pain [Recovering/Resolving]
  - Injection site reaction [Recovered/Resolved]
